FAERS Safety Report 11628607 (Version 1)
Quarter: 2015Q4

REPORT INFORMATION
  Report Type: Spontaneous
  Country: US (occurrence: None)
  Receive Date: 20151013
  Receipt Date: 20151013
  Transmission Date: 20160304
  Serious: No
  Sender: FDA-Public Use
  Company Number: None

PATIENT
  Age: 62 Year
  Sex: Male

DRUGS (1)
  1. TESTOST CYP [Suspect]
     Active Substance: TESTOSTERONE CYPIONATE
     Route: 030
     Dates: start: 201509

REACTIONS (5)
  - Pyrexia [None]
  - Chills [None]
  - Pain [None]
  - Back pain [None]
  - Hyperhidrosis [None]

NARRATIVE: CASE EVENT DATE: 20151012
